FAERS Safety Report 4617844-3 (Version None)
Quarter: 2005Q1

REPORT INFORMATION
  Report Type: 
  Country: None (occurrence: None)
  Receive Date: 20050324
  Receipt Date: 20040325
  Transmission Date: 20050727
  Serious: Yes (Hospitalization)
  Sender: FDA-Public Use
  Company Number: FR-GLAXOSMITHKLINE-B0328132A

PATIENT
  Age: 44 Year
  Sex: Female

DRUGS (4)
  1. ZOPHREN [Suspect]
     Route: 048
     Dates: start: 20030915, end: 20031022
  2. QUINAPRIL HYDROCHLORIDE AND HYDROCHLOROTHIAZDE [Suspect]
     Indication: ESSENTIAL HYPERTENSION
     Route: 048
     Dates: start: 19820101, end: 20031028
  3. NOCTRAN [Suspect]
     Route: 048
     Dates: start: 20030915, end: 20031022
  4. ETHYOL [Suspect]
     Route: 042
     Dates: start: 20030915, end: 20031022

REACTIONS (9)
  - BLISTER [None]
  - EPIDERMAL NECROSIS [None]
  - ERYTHEMA [None]
  - INFLAMMATION [None]
  - MUCOSAL EROSION [None]
  - ORAL PAIN [None]
  - PYREXIA [None]
  - RASH [None]
  - STEVENS-JOHNSON SYNDROME [None]
